FAERS Safety Report 4513184-1 (Version None)
Quarter: 2004Q4

REPORT INFORMATION
  Report Type: 
  Country: None (occurrence: None)
  Receive Date: 20041124
  Receipt Date: 20041108
  Transmission Date: 20050328
  Serious: Yes (Hospitalization)
  Sender: FDA-Public Use
  Company Number: USA041080892

PATIENT
  Age: 81 Year
  Sex: Female

DRUGS (10)
  1. CYMBALTA [Suspect]
     Indication: DEPRESSION
     Dosage: 60 MG DAY
     Dates: start: 20040923, end: 20041007
  2. LAMICTAL [Concomitant]
  3. ATIVAN [Concomitant]
  4. RISPERDAL [Concomitant]
  5. RESTORIL [Concomitant]
  6. NAMENDA (MEMANTINE HYDROCHLORIDE) [Concomitant]
  7. ARICEPT [Concomitant]
  8. ACETYLSALICYLIC ACID SRT [Concomitant]
  9. VITAMIN E [Concomitant]
  10. MULTI-VITAMIN [Concomitant]

REACTIONS (11)
  - ABASIA [None]
  - CEREBRAL ISCHAEMIA [None]
  - CEREBROVASCULAR ACCIDENT [None]
  - DELIRIUM [None]
  - DIZZINESS [None]
  - GAIT DISTURBANCE [None]
  - LACUNAR INFARCTION [None]
  - NAUSEA [None]
  - PERSONALITY CHANGE [None]
  - VERTIGO POSITIONAL [None]
  - VOMITING [None]
